FAERS Safety Report 20840045 (Version 9)
Quarter: 2024Q2

REPORT INFORMATION
  Report Type: Spontaneous
  Country: US (occurrence: US)
  Receive Date: 20220517
  Receipt Date: 20240426
  Transmission Date: 20240716
  Serious: Yes (Life-Threatening, Hospitalization, Other)
  Sender: FDA-Public Use
  Company Number: US-PFIZER INC-202200659212

PATIENT
  Age: 69 Year
  Sex: Female
  Weight: 98.43 kg

DRUGS (2)
  1. XELJANZ XR [Suspect]
     Active Substance: TOFACITINIB CITRATE
     Indication: Rheumatoid arthritis
     Dosage: 11 MG, 1X/DAY
     Route: 048
  2. PREDNISONE [Suspect]
     Active Substance: PREDNISONE
     Indication: Bronchitis
     Dosage: UNK

REACTIONS (8)
  - Bronchitis [Recovered/Resolved]
  - Meniere^s disease [Not Recovered/Not Resolved]
  - Diabetic ketoacidosis [Unknown]
  - Memory impairment [Unknown]
  - Illness [Unknown]
  - Musculoskeletal disorder [Unknown]
  - Migraine [Unknown]
  - Eye disorder [Unknown]

NARRATIVE: CASE EVENT DATE: 20230101
